FAERS Safety Report 6975293-7 (Version None)
Quarter: 2010Q3

REPORT INFORMATION
  Report Type: 
  Country: None (occurrence: None)
  Receive Date: 20100910
  Receipt Date: 20090415
  Transmission Date: 20110219
  Serious: No
  Sender: FDA-Public Use
  Company Number: US-WYE-H08422909

PATIENT
  Sex: Female
  Weight: 74 kg

DRUGS (9)
  1. PRISTIQ [Suspect]
     Indication: BIPOLAR I DISORDER
     Route: 048
     Dates: start: 20081205, end: 20090201
  2. PRISTIQ [Suspect]
     Dosage: ^1/2 TABLET EVERY OTHER DAY^ AS DIRECTED BY THE PHYSICIAN
     Route: 048
     Dates: start: 20090201, end: 20090201
  3. GEODON [Concomitant]
  4. CYMBALTA [Concomitant]
  5. TOPAMAX [Concomitant]
  6. SEROQUEL [Concomitant]
  7. VALIUM [Concomitant]
  8. LAMICTAL [Concomitant]
  9. AVIANE-28 [Concomitant]

REACTIONS (1)
  - AMENORRHOEA [None]
